FAERS Safety Report 22656750 (Version 1)
Quarter: 2023Q2

REPORT INFORMATION
  Report Type: Spontaneous
  Country: US (occurrence: US)
  Receive Date: 20230630
  Receipt Date: 20230630
  Transmission Date: 20230722
  Serious: No
  Sender: FDA-Public Use
  Company Number: US-Accord-267118

PATIENT
  Sex: Female
  Weight: 61.23 kg

DRUGS (6)
  1. CLONAZEPAM [Suspect]
     Active Substance: CLONAZEPAM
     Indication: Rapid eye movement sleep behaviour disorder
     Dosage: EVERY NIGHT AT BEDTIME, STRENGTH 2 MG
     Route: 048
  2. SUMATRIPTAN SUCCINATE [Concomitant]
     Active Substance: SUMATRIPTAN SUCCINATE
     Indication: Migraine
  3. OMEPRAZOLE [Concomitant]
     Active Substance: OMEPRAZOLE
  4. ZOMIG [Concomitant]
     Active Substance: ZOLMITRIPTAN
     Indication: Migraine
     Dosage: INTRANASALLY
  5. AMLODIPINE [Concomitant]
     Active Substance: AMLODIPINE BESYLATE
     Indication: Hypertension
     Dosage: 2.5 MG
  6. FUROSEMIDE [Concomitant]
     Active Substance: FUROSEMIDE
     Dosage: 1/2 TABLET EVERY OTHER DAY,  DIURECTIC

REACTIONS (7)
  - Poor quality sleep [Unknown]
  - Somnolence [Unknown]
  - Nightmare [Unknown]
  - Sleep terror [Unknown]
  - Drug ineffective [Unknown]
  - Off label use [Unknown]
  - Abnormal behaviour [Unknown]
